FAERS Safety Report 9276985 (Version 3)
Quarter: 2013Q3

REPORT INFORMATION
  Report Type: Spontaneous
  Country: US (occurrence: None)
  Receive Date: 20130501
  Receipt Date: 20130716
  Transmission Date: 20140515
  Serious: Yes (Hospitalization, Other)
  Sender: FDA-Public Use
  Company Number: 2013P1005072

PATIENT
  Age: 72 Year
  Sex: Male

DRUGS (4)
  1. INFUMORPH [Suspect]
     Indication: SPINAL PAIN
     Route: 037
  2. DILAUDID [Suspect]
     Route: 037
  3. BUPIVACAINE [Suspect]
     Route: 037
  4. CLONIDINE [Suspect]
     Dates: start: 201304

REACTIONS (2)
  - Pseudomonas infection [None]
  - Device related infection [None]
